FAERS Safety Report 8419300-3 (Version None)
Quarter: 2012Q2

REPORT INFORMATION
  Report Type: 
  Country: None (occurrence: None)
  Receive Date: 20120607
  Receipt Date: 20120529
  Transmission Date: 20120825
  Serious: Yes (Hospitalization)
  Sender: FDA-Public Use
  Company Number: US-ROCHE-1075115

PATIENT
  Age: 56 Year
  Sex: Female
  Weight: 48.2 kg

DRUGS (16)
  1. COLECALCIFEROL [Concomitant]
     Dates: start: 20090101
  2. KELP [Concomitant]
     Dates: start: 20110301
  3. VITAMIN B-12 [Concomitant]
     Dates: start: 20070201
  4. CAFFEINE [Suspect]
     Indication: PRODUCT USED FOR UNKNOWN INDICATION
  5. RED YEAST RICE [Concomitant]
     Dates: start: 20100601
  6. UBIDECARENONE [Concomitant]
     Dates: start: 20090401
  7. DIGESTIVE ENZYMES [Concomitant]
     Dates: start: 20110301
  8. VITAMIN B6 [Concomitant]
     Dates: start: 19850601
  9. ALCOHOL [Suspect]
     Indication: PRODUCT USED FOR UNKNOWN INDICATION
  10. BIOTIN [Concomitant]
     Dates: start: 20090101
  11. FISH OIL [Concomitant]
  12. ASCORBIC ACID [Concomitant]
     Dates: start: 19850601
  13. NAPROXEN [Suspect]
     Indication: PSORIATIC ARTHROPATHY
     Route: 048
     Dates: start: 20041001
  14. IBUPROFEN [Suspect]
     Indication: BACK PAIN
     Dosage: PRN
     Route: 065
     Dates: start: 19800901
  15. NIASPAN [Concomitant]
     Dates: start: 20111013
  16. FOLIC ACID [Concomitant]
     Dates: start: 19850601

REACTIONS (7)
  - GASTRITIS [None]
  - HIATUS HERNIA [None]
  - OESOPHAGEAL ULCER HAEMORRHAGE [None]
  - DIARRHOEA HAEMORRHAGIC [None]
  - OESOPHAGEAL STENOSIS [None]
  - ANAEMIA [None]
  - DUODENITIS [None]
